FAERS Safety Report 13400191 (Version 2)
Quarter: 2017Q2

REPORT INFORMATION
  Report Type: Spontaneous
  Country: US (occurrence: US)
  Receive Date: 20170404
  Receipt Date: 20170512
  Transmission Date: 20170830
  Serious: No
  Sender: FDA-Public Use
  Company Number: US-PFIZER INC-2017142908

PATIENT
  Age: 11 Year
  Sex: Male

DRUGS (1)
  1. CHILDRENS ADVIL [Suspect]
     Active Substance: IBUPROFEN
     Indication: PYREXIA
     Dosage: UNK
     Dates: start: 201704

REACTIONS (2)
  - Product taste abnormal [Unknown]
  - Retching [Recovered/Resolved]

NARRATIVE: CASE EVENT DATE: 201704
